FAERS Safety Report 13126331 (Version 1)
Quarter: 2017Q1

REPORT INFORMATION
  Report Type: Report from Study
  Country: FR (occurrence: FR)
  Receive Date: 20170118
  Receipt Date: 20170118
  Transmission Date: 20170428
  Serious: Yes (Death)
  Sender: FDA-Public Use
  Company Number: FR-PFIZER INC-2017000036

PATIENT
  Age: 54 Year
  Sex: Male

DRUGS (4)
  1. CYCLOPHOSPHAMIDE. [Suspect]
     Active Substance: CYCLOPHOSPHAMIDE
     Indication: NON-HODGKIN^S LYMPHOMA
     Dosage: 45 MG/KG, DAILY (FROM DAY 1 TO DAY 4)
     Route: 042
  2. CCNU [Suspect]
     Active Substance: LOMUSTINE
     Indication: NON-HODGKIN^S LYMPHOMA
     Dosage: 200 MG/M2, (ON DAY 2)
     Route: 048
  3. 6-THIOGUANIDINE [Suspect]
     Active Substance: THIOGUANINE ANHYDROUS
     Indication: NON-HODGKIN^S LYMPHOMA
     Dosage: 100 MG/M2, 2X/DAY (ON DAYS 1 TO 4 FOR A TOTAL OF 7 DOSES)
     Route: 048
  4. CYTARABINE. [Suspect]
     Active Substance: CYTARABINE
     Indication: NON-HODGKIN^S LYMPHOMA
     Dosage: 200 MG/M2, 2X/DAY (EVERY 12 HOURS ON DAYS 1 TO 4 FOR A TOTAL OF 7 DOSES)
     Route: 041

REACTIONS (2)
  - Myocardial haemorrhage [Fatal]
  - Cardiac failure [Fatal]
